FAERS Safety Report 4920429-2 (Version None)
Quarter: 2006Q1

REPORT INFORMATION
  Report Type: 
  Country: None (occurrence: None)
  Receive Date: 20060216
  Receipt Date: 20060203
  Transmission Date: 20060701
  Serious: Yes (Life-Threatening)
  Sender: FDA-Public Use
  Company Number: 2006019260

PATIENT
  Age: 48 Year
  Sex: Female
  Weight: 65 kg

DRUGS (6)
  1. SOLU-MEDROL [Suspect]
     Indication: BONE PAIN
     Dosage: 125 MG, INTRAVENOUS
     Route: 042
     Dates: start: 20060111, end: 20060111
  2. ASPIRIN [Concomitant]
  3. ATORVASTATIN CALCIUM [Concomitant]
  4. EZETIMIBE (EZETIMIBE) [Concomitant]
  5. TENOXICAM (TENOXICAM) [Concomitant]
  6. THIOCOLCHICOSIDE (THIOCOLCHICOSIDE) [Concomitant]

REACTIONS (3)
  - BLINDNESS TRANSIENT [None]
  - CHEST PAIN [None]
  - DYSPNOEA [None]
